FAERS Safety Report 5045709-4 (Version None)
Quarter: 2006Q2

REPORT INFORMATION
  Report Type: 
  Country: None (occurrence: None)
  Receive Date: 20060601
  Receipt Date: 20060222
  Transmission Date: 20061013
  Serious: No
  Sender: FDA-Public Use
  Company Number: US200602004897

PATIENT
  Age: 35 Year
  Sex: Female

DRUGS (2)
  1. CYMBALTA [Suspect]
     Indication: DEPRESSION
     Dosage: 30 MG, DAILY (1/D)
     Dates: end: 20060222
  2. ANTIEPILEPTICS [Concomitant]

REACTIONS (2)
  - VISION BLURRED [None]
  - VISUAL ACUITY REDUCED [None]
